FAERS Safety Report 20106027 (Version 3)
Quarter: 2021Q4

REPORT INFORMATION
  Report Type: Spontaneous
  Country: CN (occurrence: CN)
  Receive Date: 20211124
  Receipt Date: 20211206
  Transmission Date: 20220303
  Serious: Yes (Death, Other)
  Sender: FDA-Public Use
  Company Number: CN-KYOWAKIRIN-2021AKK019833

PATIENT

DRUGS (6)
  1. PEGFILGRASTIM [Suspect]
     Active Substance: PEGFILGRASTIM
     Indication: Product used for unknown indication
     Dosage: 200 UG/M2, DAILY ON DAYS 3-17
     Route: 058
  2. FILGRASTIM [Suspect]
     Active Substance: FILGRASTIM
     Indication: Product used for unknown indication
     Dosage: 200 UG/M2, DAILY ON DAYS 3-17
     Route: 058
  3. TUCIDINOSTAT [Suspect]
     Active Substance: TUCIDINOSTAT
     Indication: Acute myeloid leukaemia
     Dosage: 30 MG, 2X/WEEK, FOR 2 WEEKS ON DAYS 1, 4, 8, AND 11
     Route: 048
  4. DECITABINE [Suspect]
     Active Substance: DECITABINE
     Indication: Acute myeloid leukaemia
     Dosage: 20 MG/M2, DAILY FOR 5 DAYS (D1-D5)
     Route: 042
  5. CYTARABINE [Suspect]
     Active Substance: CYTARABINE
     Indication: Acute myeloid leukaemia
     Dosage: 10 MG/M2, EVERY 12 HRS. ON DAYS 4-17
     Route: 058
  6. IDARUBICIN [Suspect]
     Active Substance: IDARUBICIN
     Indication: Acute myeloid leukaemia
     Dosage: 5 MG, EVERY OTHER DAY ON DAYS 4, 6, 8, 10, 12, AND 14
     Route: 042

REACTIONS (1)
  - Septic shock [Fatal]
